FAERS Safety Report 7779945-0 (Version None)
Quarter: 2011Q3

REPORT INFORMATION
  Report Type: 
  Country: None (occurrence: None)
  Receive Date: 20110927
  Receipt Date: 20110914
  Transmission Date: 20111222
  Serious: Yes (Death, Life-Threatening, Hospitalization)
  Sender: FDA-Public Use
  Company Number: JP-BRISTOL-MYERS SQUIBB COMPANY-14627426

PATIENT
  Age: 59 Year
  Sex: Male

DRUGS (41)
  1. HYDROCORTISONE SODIUM SUCCINATE [Concomitant]
     Route: 042
  2. MEROPENEM [Concomitant]
     Route: 042
     Dates: start: 20090709, end: 20090718
  3. SULFAMETHOXAZOLE [Concomitant]
     Indication: PROPHYLAXIS
     Dosage: 1 DOSAGE FORM = 1 TAB
     Route: 048
  4. CHLORPHENIRAMINE MALEATE [Concomitant]
     Dosage: INJ (IV) 5MG/D(21-26MAY09) ORAL(5MG/D)
     Route: 042
     Dates: start: 20090521
  5. ORGARAN [Concomitant]
     Dosage: ADMINISTERED AT 2500 (UNIT UNSPECIFIED) INJ
     Route: 042
     Dates: start: 20090721, end: 20090811
  6. CEFAZOLIN SODIUM [Concomitant]
     Dosage: TAB 1DF=3TAB/DAY
     Route: 048
     Dates: start: 20090713
  7. SODIUM CITRATE [Concomitant]
     Dates: end: 20090408
  8. INSULIN HUMAN [Concomitant]
     Route: 058
  9. FILGRASTIM [Concomitant]
     Route: 048
     Dates: end: 20090420
  10. VORICONAZOLE [Concomitant]
     Route: 042
     Dates: end: 20090330
  11. MINOCYCLINE HCL [Concomitant]
     Dosage: INJ
     Route: 042
     Dates: start: 20090713, end: 20090718
  12. MAXIPIME [Concomitant]
     Route: 042
     Dates: start: 20090521, end: 20090529
  13. ISODINE [Concomitant]
     Indication: PROPHYLAXIS
     Dosage: SOLN LIQ
     Route: 061
     Dates: start: 20090706
  14. POLYETHYLENE GLYCOL [Concomitant]
     Route: 042
     Dates: start: 20090709, end: 20090709
  15. LANIRAPID [Concomitant]
     Route: 048
     Dates: end: 20090630
  16. SPRYCEL [Suspect]
     Indication: ACUTE LYMPHOCYTIC LEUKAEMIA
     Dosage: 100MG:25MAY09-3JUN 70MG:7-15JUL 90MG:16JUL-2AUG 140MG:3AUG-11AUG09 INTER:8APR09 11AUG09-DISCON
     Route: 048
     Dates: start: 20090330, end: 20090811
  17. PREDNISOLONE [Concomitant]
     Indication: ACUTE LYMPHOCYTIC LEUKAEMIA
     Dosage: 10MG(10JUL-13JUL) 30MG(13-15JUL) 50MG(22MAY09)(16JUL-18JUL) INJECTION
     Route: 042
     Dates: start: 20090522
  18. FURSULTIAMINE [Concomitant]
     Route: 048
     Dates: end: 20090408
  19. VITAMIN B1 TAB [Concomitant]
     Dosage: INJ
     Route: 042
     Dates: start: 20090522
  20. ALLOPURINOL [Concomitant]
     Indication: PROPHYLAXIS
     Dosage: 200MG/D(25MAY09) 300MG(26MAY09-ONG) TAB
     Route: 048
     Dates: start: 20090525
  21. TAZOBACTAM [Concomitant]
     Route: 042
     Dates: start: 20090719, end: 20090727
  22. VANCOMYCIN [Concomitant]
     Route: 042
     Dates: start: 20090718, end: 20090727
  23. CALCIUM GLUCONATE [Concomitant]
     Route: 042
     Dates: start: 20090722
  24. FUNGUARD [Concomitant]
     Route: 042
     Dates: start: 20090718, end: 20090811
  25. LENOGRASTIM [Concomitant]
     Route: 042
  26. VALTREX [Concomitant]
     Indication: PROPHYLAXIS
     Dosage: TABS
     Route: 048
     Dates: start: 20090714
  27. LOXONIN [Concomitant]
     Dosage: TAB
     Route: 048
     Dates: start: 20090718
  28. POTASSIUM CITRATE [Concomitant]
     Indication: PROPHYLAXIS
     Dosage: 2 TABS TILL 8 APR09 2 DOSAGE FORM = 2 TABS(25MAY09) 3 TABS(26MAY09-ONG) INJ-20ML(2MAY-01JUN09)
     Route: 048
     Dates: end: 20090601
  29. LASIX [Concomitant]
     Indication: PROPHYLAXIS
     Dosage: INJ:IV:20MG/DAY:18-JUL09-11AUG09 TAB
     Route: 048
     Dates: start: 20090718, end: 20090718
  30. GLYCYRRHIZINIC ACID [Concomitant]
     Dosage: INJ
     Route: 042
  31. POTASSIUM CHLORIDE [Concomitant]
     Route: 042
     Dates: start: 20090522, end: 20090601
  32. VITANEURIN [Concomitant]
     Dosage: 1DF=3 CAP/DAY
     Route: 048
     Dates: end: 20090408
  33. DEPAS [Concomitant]
     Dosage: TABS 1MG/DAY:UNK-20APR09 0.5MG/DAY:3JUL09-UNK
     Route: 048
  34. SODIUM CHLORIDE [Concomitant]
     Route: 042
  35. METOCLOPRAMIDE HYDROCHLORIDE [Concomitant]
     Route: 042
  36. FAMOTIDINE [Concomitant]
     Indication: PROPHYLAXIS
     Dosage: TAB GASPORT D
     Route: 048
  37. ITRACONAZOLE [Concomitant]
     Dosage: CAPS
     Route: 048
  38. LACTIC ACID BACTERIA [Concomitant]
     Dosage: 3 DF = 3 TABS
     Route: 048
  39. MUCOSTA [Concomitant]
     Indication: PROPHYLAXIS
     Dosage: TAB
     Route: 048
     Dates: start: 20090718
  40. VENA [Concomitant]
     Indication: PRURITUS
     Dosage: TAB
     Route: 048
     Dates: start: 20090515, end: 20090610
  41. ELECTROLYTE SOLUTION [Concomitant]
     Dosage: INJ CONTAINING AMINOACID VITAMIN B1
     Route: 042

REACTIONS (13)
  - GASTROINTESTINAL MUCOSAL DISORDER [None]
  - NEUTROPHIL COUNT DECREASED [None]
  - DISSEMINATED INTRAVASCULAR COAGULATION [None]
  - BLOOD GLUCOSE INCREASED [None]
  - ANAEMIA [None]
  - DECREASED APPETITE [None]
  - WHITE BLOOD CELL COUNT DECREASED [None]
  - GENERALISED OEDEMA [None]
  - SEPSIS [None]
  - NEUROPATHY PERIPHERAL [None]
  - NEOPLASM MALIGNANT [None]
  - PLATELET COUNT DECREASED [None]
  - SOMNOLENCE [None]
